FAERS Safety Report 21822521 (Version 3)
Quarter: 2023Q1

REPORT INFORMATION
  Report Type: Spontaneous
  Country: US (occurrence: None)
  Receive Date: 20230105
  Receipt Date: 20230330
  Transmission Date: 20230418
  Serious: Yes (Hospitalization, Other)
  Sender: FDA-Public Use
  Company Number: US-ROCHE-3254537

PATIENT
  Age: 57 Year
  Sex: Female

DRUGS (1)
  1. CAPECITABINE [Suspect]
     Active Substance: CAPECITABINE
     Indication: Breast cancer metastatic
     Route: 048
     Dates: start: 20221012

REACTIONS (6)
  - Sialoadenitis [Unknown]
  - Cellulitis [Unknown]
  - Bone lesion [Unknown]
  - Osteosclerosis [Unknown]
  - Metastases to bone [Unknown]
  - Sialoadenitis [Recovering/Resolving]

NARRATIVE: CASE EVENT DATE: 20221213
